FAERS Safety Report 6745907-5 (Version None)
Quarter: 2010Q2

REPORT INFORMATION
  Report Type: 
  Country: None (occurrence: None)
  Receive Date: 20100528
  Receipt Date: 20100519
  Transmission Date: 20101027
  Serious: Yes (Hospitalization)
  Sender: FDA-Public Use
  Company Number: BR-MEDIMMUNE-MEDI-0011207

PATIENT
  Sex: Female
  Weight: 5 kg

DRUGS (5)
  1. SYNAGIS [Suspect]
     Indication: CARDIAC DISORDER
     Route: 030
     Dates: start: 20100422, end: 20100422
  2. FUROSEMIDE [Interacting]
     Indication: CARDIAC DISORDER
     Route: 048
     Dates: start: 20091127
  3. HYDRALAZINE HCL [Concomitant]
     Indication: CARDIAC DISORDER
     Route: 048
     Dates: start: 20091127
  4. ASPIRIN [Concomitant]
     Route: 048
     Dates: start: 20100405
  5. RANITIDINE HYDROCHLORIDE [Concomitant]
     Route: 048
     Dates: start: 20091127

REACTIONS (1)
  - PNEUMONIA [None]
